FAERS Safety Report 8220577-8 (Version None)
Quarter: 2012Q1

REPORT INFORMATION
  Report Type: 
  Country: None (occurrence: None)
  Receive Date: 20120320
  Receipt Date: 20120306
  Transmission Date: 20120608
  Serious: Yes (Other)
  Sender: FDA-Public Use
  Company Number: NL-MYLANLABS-2012S1004976

PATIENT
  Age: 61 Year
  Sex: Male
  Weight: 84 kg

DRUGS (3)
  1. PERSANTIN [Suspect]
     Indication: TRANSIENT ISCHAEMIC ATTACK
  2. ASPIRIN [Suspect]
     Indication: TRANSIENT ISCHAEMIC ATTACK
  3. TAMSULOSIN HCL [Suspect]
     Indication: URINARY TRACT DISORDER
     Dosage: 1DD1
     Route: 048
     Dates: start: 20120130, end: 20120208

REACTIONS (1)
  - HAEMORRHAGIC DIATHESIS [None]
